FAERS Safety Report 15003433 (Version 4)
Quarter: 2018Q3

REPORT INFORMATION
  Report Type: Spontaneous
  Country: US (occurrence: US)
  Receive Date: 20180613
  Receipt Date: 20180717
  Transmission Date: 20181010
  Serious: Yes (Hospitalization, Other)
  Sender: FDA-Public Use
  Company Number: US-SHIRE-US201821385

PATIENT
  Age: 30 Year
  Sex: Female
  Weight: 82 kg

DRUGS (18)
  1. VYVANSE [Interacting]
     Active Substance: LISDEXAMFETAMINE DIMESYLATE
     Dosage: 30 MG, 1X/DAY:QD
     Route: 048
     Dates: start: 201704, end: 201705
  2. VYVANSE [Interacting]
     Active Substance: LISDEXAMFETAMINE DIMESYLATE
     Dosage: 40 MG, 2X/DAY:BID (ONE CAPSULE AT 7 AM AND OTHER 40 MG FEW HOURS LATER)
     Route: 048
     Dates: end: 2018
  3. VYVANSE [Interacting]
     Active Substance: LISDEXAMFETAMINE DIMESYLATE
     Dosage: 40 MG, 1X/DAY:QD
     Route: 048
     Dates: start: 201702, end: 201703
  4. VYVANSE [Interacting]
     Active Substance: LISDEXAMFETAMINE DIMESYLATE
     Dosage: 30 OR 40 MG, 1X/DAY:QD
     Route: 048
     Dates: start: 201709
  5. MYDAYIS [Suspect]
     Active Substance: AMPHETAMINE ASPARTATE\AMPHETAMINE SULFATE\DEXTROAMPHETAMINE SACCHARATE\DEXTROAMPHETAMINE SULFATE
     Indication: ASTHENIA
  6. TRAZODONE [Interacting]
     Active Substance: TRAZODONE HYDROCHLORIDE
     Indication: SLEEP DISORDER
     Dosage: 100 MG, UNK (1 TO 3 TABLETS NIGHTLY)
     Route: 048
  7. ZYPREXA [Concomitant]
     Active Substance: OLANZAPINE
     Indication: VISUAL IMPAIRMENT
  8. CYMBALTA [Suspect]
     Active Substance: DULOXETINE HYDROCHLORIDE
     Indication: PRODUCT USED FOR UNKNOWN INDICATION
     Dosage: 60 MG, 1X/DAY:QD
     Route: 048
  9. VYVANSE [Interacting]
     Active Substance: LISDEXAMFETAMINE DIMESYLATE
     Dosage: 50 MG, 1X/DAY:QD
     Route: 048
     Dates: start: 201703, end: 201704
  10. MYDAYIS [Suspect]
     Active Substance: AMPHETAMINE ASPARTATE\AMPHETAMINE SULFATE\DEXTROAMPHETAMINE SACCHARATE\DEXTROAMPHETAMINE SULFATE
     Indication: ATTENTION DEFICIT/HYPERACTIVITY DISORDER
     Dosage: 25 MG, 1X/DAY:QD
     Route: 048
     Dates: start: 20180313, end: 20180317
  11. TRILEPTAL [Concomitant]
     Active Substance: OXCARBAZEPINE
     Indication: AFFECTIVE DISORDER
  12. VYVANSE [Interacting]
     Active Substance: LISDEXAMFETAMINE DIMESYLATE
     Dosage: 80 MG, 1X/DAY:QD
     Route: 048
  13. DEXEDRIN [Concomitant]
     Indication: PRODUCT USED FOR UNKNOWN INDICATION
  14. VYVANSE [Suspect]
     Active Substance: LISDEXAMFETAMINE DIMESYLATE
     Indication: PRODUCT USED FOR UNKNOWN INDICATION
     Dosage: 30 MG, 1X/DAY:QD
     Route: 048
     Dates: start: 201701, end: 201702
  15. XANAX [Concomitant]
     Active Substance: ALPRAZOLAM
     Indication: ANXIETY
  16. VYVANSE [Interacting]
     Active Substance: LISDEXAMFETAMINE DIMESYLATE
     Dosage: 50 MG, 1X/DAY:QD
     Route: 048
     Dates: start: 201803, end: 2018
  17. VYVANSE [Interacting]
     Active Substance: LISDEXAMFETAMINE DIMESYLATE
     Dosage: 40 MG, 2X/DAY:BID
     Route: 048
     Dates: end: 201803
  18. GABAPENTIN. [Concomitant]
     Active Substance: GABAPENTIN
     Indication: ANXIETY

REACTIONS (18)
  - Hypoacusis [Recovered/Resolved]
  - Asthenia [Not Recovered/Not Resolved]
  - Malaise [Recovering/Resolving]
  - Visual impairment [Recovered/Resolved]
  - Psychotic disorder [Not Recovered/Not Resolved]
  - Sedation complication [Recovering/Resolving]
  - Drug prescribing error [Recovered/Resolved]
  - Nonspecific reaction [Recovering/Resolving]
  - Tachyphrenia [Recovered/Resolved]
  - Psychotic disorder [Recovered/Resolved]
  - Drug interaction [Not Recovered/Not Resolved]
  - Serotonin syndrome [Recovered/Resolved]
  - Feeling abnormal [Not Recovered/Not Resolved]
  - Mental impairment [Not Recovered/Not Resolved]
  - Headache [Not Recovered/Not Resolved]
  - Drug level increased [Not Recovered/Not Resolved]
  - Delusion of grandeur [Recovered/Resolved]
  - Drug ineffective [Not Recovered/Not Resolved]

NARRATIVE: CASE EVENT DATE: 201703
